FAERS Safety Report 11532649 (Version 2)
Quarter: 2016Q1

REPORT INFORMATION
  Report Type: Spontaneous
  Country: FR (occurrence: FR)
  Receive Date: 20150921
  Receipt Date: 20160113
  Transmission Date: 20160525
  Serious: Yes (Hospitalization)
  Sender: FDA-Public Use
  Company Number: FR-TEVA-593613ISR

PATIENT
  Sex: Male

DRUGS (8)
  1. AIROMIR [Concomitant]
     Active Substance: ALBUTEROL SULFATE
     Dosage: STARTED SEVERAL MONTHS EARLIER
     Route: 055
     Dates: end: 20150818
  2. PARACETAMOL [Concomitant]
     Active Substance: ACETAMINOPHEN
     Dosage: STARTED SEVERAL MONTHS EARLIER
     Route: 048
  3. NEO CODION [Suspect]
     Active Substance: CODEINE\GRINDELIA HIRSUTULA FLOWERING TOP
     Dosage: STARTED SEVERAL MONTHS EARLIER
     Route: 048
     Dates: end: 20150818
  4. BACTRIM [Concomitant]
     Active Substance: SULFAMETHOXAZOLE\TRIMETHOPRIM
     Route: 048
  5. QVAR [Suspect]
     Active Substance: BECLOMETHASONE DIPROPIONATE
     Dosage: STARTED SEVERAL MONTHS EARLIER
     Route: 055
     Dates: end: 20150818
  6. LAMALINE [Suspect]
     Active Substance: ACETAMINOPHEN\CAFFEINE\OPIUM
     Dosage: STARTED SEVERAL MONTHS EARLIER, 1 DF = CAFFEINE 0.030 G + PARACETAMOL 0.300 G + OPIUM 0.010 G
     Route: 048
     Dates: end: 20150818
  7. ACICLOVIR [Concomitant]
     Active Substance: ACYCLOVIR
     Dosage: 800 MILLIGRAM DAILY; STARTED BEFORE JAN-2013
     Route: 048
  8. IMBRUVICA [Suspect]
     Active Substance: IBRUTINIB
     Dosage: 420 MILLIGRAM DAILY;
     Route: 048
     Dates: start: 20150415, end: 20150818

REACTIONS (2)
  - Interstitial lung disease [Recovering/Resolving]
  - Condition aggravated [Recovering/Resolving]
